FAERS Safety Report 7459521-X (Version None)
Quarter: 2011Q2

REPORT INFORMATION
  Report Type: 
  Country: None (occurrence: None)
  Receive Date: 20110504
  Receipt Date: 20110504
  Transmission Date: 20111010
  Serious: Yes (Hospitalization)
  Sender: FDA-Public Use
  Company Number: None

PATIENT
  Age: 45 Year
  Sex: Male

DRUGS (3)
  1. SEROQUEL [Suspect]
     Indication: PSYCHOTIC DISORDER
     Dosage: 200 MG QID PO
     Route: 048
     Dates: start: 20110203, end: 20110310
  2. SEROQUEL [Suspect]
     Indication: AGITATION
     Dosage: 200 MG QID PO
     Route: 048
     Dates: start: 20110203, end: 20110310
  3. SEROQUEL [Suspect]
     Indication: MANIA
     Dosage: 200 MG QID PO
     Route: 048
     Dates: start: 20110203, end: 20110310

REACTIONS (8)
  - ABDOMINAL PAIN UPPER [None]
  - DIARRHOEA [None]
  - GASTROENTERITIS [None]
  - MUSCLE SPASMS [None]
  - DIET REFUSAL [None]
  - ILEUS [None]
  - ABDOMINAL DISTENSION [None]
  - PANCREATITIS [None]
